FAERS Safety Report 4797514-1 (Version None)
Quarter: 2005Q4

REPORT INFORMATION
  Report Type: 
  Country: None (occurrence: None)
  Receive Date: 20051013
  Receipt Date: 20051004
  Transmission Date: 20060501
  Serious: Yes (Hospitalization)
  Sender: FDA-Public Use
  Company Number: US-ABBOTT-05P-163-0312881-00

PATIENT
  Sex: Female
  Weight: 77.18 kg

DRUGS (6)
  1. HUMIRA [Suspect]
     Indication: RHEUMATOID ARTHRITIS
     Route: 058
     Dates: start: 20050505, end: 20050901
  2. HYDROXYCHLOROQUINE PHOSPHATE [Concomitant]
     Indication: RHEUMATOID ARTHRITIS
     Dates: start: 20031023
  3. FLUCONAZOLE [Concomitant]
     Indication: FUNGAL INFECTION
     Dates: start: 20050328, end: 20050328
  4. AMOXICILLIN [Concomitant]
     Indication: COUGH
     Dates: start: 20050328, end: 20050402
  5. AMOXICILLIN [Concomitant]
     Indication: BRONCHITIS
  6. CRESTOR [Concomitant]
     Indication: HYPERLIPIDAEMIA
     Dates: start: 20050422

REACTIONS (1)
  - PNEUMONIA LEGIONELLA [None]
